FAERS Safety Report 9639417 (Version 1)
Quarter: 2013Q4

REPORT INFORMATION
  Report Type: Report from Study
  Country: JP (occurrence: JP)
  Receive Date: 20131022
  Receipt Date: 20131022
  Transmission Date: 20140711
  Serious: Yes (Death)
  Sender: FDA-Public Use
  Company Number: JP-ROCHE-1289794

PATIENT
  Age: 83 Year
  Sex: Female

DRUGS (2)
  1. METHOXY POLYETHYLENE GLYCOL-EPOETIN BETA [Suspect]
     Indication: NEPHROGENIC ANAEMIA
     Route: 042
     Dates: start: 20120529, end: 20120712
  2. FESIN (JAPAN) [Concomitant]
     Route: 042
     Dates: start: 20120529, end: 201206

REACTIONS (1)
  - Death [Fatal]
